FAERS Safety Report 9461543 (Version 1)
Quarter: 2013Q3

REPORT INFORMATION
  Report Type: Spontaneous
  Country: US (occurrence: None)
  Receive Date: 20130814
  Receipt Date: 20130814
  Transmission Date: 20140515
  Serious: Yes (Disabling)
  Sender: FDA-Public Use
  Company Number: None

PATIENT
  Age: 37 Year
  Sex: Male
  Weight: 117.94 kg

DRUGS (1)
  1. TRAMADOL 50 MG TEVA, AMNEAL, MYLAN [Suspect]
     Indication: BACK PAIN
     Route: 048
     Dates: start: 20090812, end: 20130813

REACTIONS (2)
  - Headache [None]
  - Product quality issue [None]
